FAERS Safety Report 11908520 (Version 2)
Quarter: 2016Q1

REPORT INFORMATION
  Report Type: Report from Study
  Country: JP (occurrence: JP)
  Receive Date: 20160111
  Receipt Date: 20160120
  Transmission Date: 20160526
  Serious: Yes (Hospitalization)
  Sender: FDA-Public Use
  Company Number: JP-AMGEN-JPNCT2015141307

PATIENT
  Age: 76 Year
  Sex: Male
  Weight: 62 kg

DRUGS (14)
  1. DIOVAN [Concomitant]
     Active Substance: VALSARTAN
     Indication: HYPERTENSION
     Dosage: 80 MG, QD
     Route: 048
  2. JUVELA                             /00110502/ [Concomitant]
     Dosage: UNK
     Route: 065
  3. ALOSITOL [Concomitant]
     Active Substance: ALLOPURINOL
     Indication: HYPERURICAEMIA
     Dosage: 100 MG, QD
     Route: 048
     Dates: start: 20110506
  4. URINORM                            /00227201/ [Concomitant]
     Indication: HYPERURICAEMIA
     Dosage: 50 MG, QD
     Route: 048
     Dates: start: 20150807
  5. CALONAL [Concomitant]
     Active Substance: ACETAMINOPHEN
     Indication: HEADACHE
     Dosage: 1 G, TID
     Route: 048
     Dates: start: 20151204
  6. TRAZENTA [Concomitant]
     Active Substance: LINAGLIPTIN
     Indication: TYPE 2 DIABETES MELLITUS
     Dosage: 5 MG, QD
     Route: 048
     Dates: start: 20140919
  7. INSULIN [Concomitant]
     Active Substance: INSULIN NOS
     Dosage: UNK
     Route: 042
  8. AMLODIN [Concomitant]
     Active Substance: AMLODIPINE BESYLATE
     Dosage: UNK
     Route: 048
  9. DARBEPOETIN ALFA [Suspect]
     Active Substance: DARBEPOETIN ALFA
     Indication: NEPHROGENIC ANAEMIA
     Dosage: 30 MUG, UNK
     Route: 058
     Dates: start: 20151002, end: 20151204
  10. BIO-THREE [Concomitant]
     Active Substance: HERBALS
     Indication: GASTROENTERITIS
     Dosage: 1 G, TID
     Route: 048
     Dates: start: 20151204
  11. NOVORAPID [Concomitant]
     Active Substance: INSULIN ASPART
     Indication: TYPE 2 DIABETES MELLITUS
     Dosage: UNK, TID
     Route: 065
     Dates: start: 2010
  12. PASTARON [Concomitant]
     Active Substance: UREA
     Indication: PRURITUS
     Dosage: UNK, QD
     Route: 061
     Dates: start: 20151016
  13. CRESTOR [Concomitant]
     Active Substance: ROSUVASTATIN CALCIUM
     Indication: HYPERLIPIDAEMIA
     Dosage: 2.5 MG, QD
     Route: 048
  14. LASIX [Concomitant]
     Active Substance: FUROSEMIDE
     Indication: HYPERTENSION
     Dosage: 20 MG, QD
     Route: 048
     Dates: start: 20151002

REACTIONS (1)
  - Cerebral haemorrhage [Recovering/Resolving]

NARRATIVE: CASE EVENT DATE: 20151225
